FAERS Safety Report 5533219-7 (Version None)
Quarter: 2007Q4

REPORT INFORMATION
  Report Type: 
  Country: None (occurrence: None)
  Receive Date: 20071204
  Receipt Date: 20071123
  Transmission Date: 20080405
  Serious: Yes (Hospitalization, Disabling, Other)
  Sender: FDA-Public Use
  Company Number: ZA-MERCK-0709ZAF00015

PATIENT
  Age: 60 Year
  Sex: Female
  Weight: 65 kg

DRUGS (5)
  1. SINGULAIR [Suspect]
     Indication: ASTHMA
     Route: 048
     Dates: start: 20020101, end: 20021016
  2. LEVOTHYROXINE SODIUM [Concomitant]
     Route: 048
     Dates: start: 20000101
  3. CANDESARTAN CILEXETIL AND HYDROCHLOROTHIAZIDE [Concomitant]
     Indication: HYPERTENSION
     Route: 048
     Dates: start: 20030101
  4. FLUTICASONE PROPIONATE AND SALMETEROL XINAFOATE [Concomitant]
     Indication: ASTHMA
     Dates: start: 20000101
  5. FLUTICASONE PROPIONATE [Concomitant]
     Dates: start: 20000101

REACTIONS (4)
  - ALLERGIC GRANULOMATOUS ANGIITIS [None]
  - DIPLEGIA [None]
  - PAIN IN EXTREMITY [None]
  - UNDERSENSING [None]
